FAERS Safety Report 21970447 (Version 3)
Quarter: 2024Q3

REPORT INFORMATION
  Report Type: Spontaneous
  Country: US (occurrence: US)
  Receive Date: 20230209
  Receipt Date: 20240731
  Transmission Date: 20241016
  Serious: Yes (Hospitalization)
  Sender: NOVO NORDISK
  Company Number: US-NOVOPROD-1020001

PATIENT
  Age: 54 Year
  Sex: Female
  Weight: 329 kg

DRUGS (11)
  1. WEGOVY [Suspect]
     Active Substance: SEMAGLUTIDE
     Indication: Obesity
     Dosage: 0.25 MG
     Route: 058
     Dates: start: 20230111
  2. LASIX [Concomitant]
     Active Substance: FUROSEMIDE
     Indication: Product used for unknown indication
     Dosage: 40 MG
     Dates: start: 20220818
  3. TRILEPTAL [Concomitant]
     Active Substance: OXCARBAZEPINE
     Indication: Product used for unknown indication
     Dosage: 300 MG, BID
     Dates: start: 20230126
  4. TRILEPTAL [Concomitant]
     Active Substance: OXCARBAZEPINE
     Dosage: 300MG MORNING 300MG NIGHT
  5. LIPITOR [Concomitant]
     Active Substance: ATORVASTATIN CALCIUM
     Indication: Product used for unknown indication
     Dosage: 20 MG, QD
     Dates: start: 20220818
  6. LORATADINE [Concomitant]
     Active Substance: LORATADINE
     Dosage: TAKE 1 TABLET EVERYDAY BY MOUTH
     Route: 048
     Dates: start: 20230303
  7. POTASSIUM CHLORIDE [Concomitant]
     Active Substance: POTASSIUM CHLORIDE
     Dosage: TAKE 1 TABLET EVERYDAY BY MOUTH
     Route: 048
     Dates: start: 20230221
  8. VITAMIN C [Concomitant]
     Active Substance: ASCORBIC ACID
     Dosage: TAKE EVERYDAY BY MOUTH GUMMIES
     Route: 048
  9. VITAMIN D3 [Concomitant]
     Active Substance: CHOLECALCIFEROL
     Dosage: TAKE EVERYDAYBY MOUTH
     Route: 048
  10. MELOXICAM [Concomitant]
     Active Substance: MELOXICAM
     Dosage: TAKE ONE TABLET EVERYDAY BY MOUTH WITH FOOD
     Route: 048
     Dates: start: 20220818
  11. DICLOFENAC [Concomitant]
     Active Substance: DICLOFENAC
     Dosage: 2G BY TOPICAL ROUTE THREE TIMES DAILY
     Route: 061
     Dates: start: 20210802

REACTIONS (7)
  - Psychotic disorder [Recovering/Resolving]
  - Bipolar disorder [Recovering/Resolving]
  - Nosocomial infection [Recovered/Resolved]
  - Upper respiratory tract infection [Recovered/Resolved]
  - Memory impairment [Recovering/Resolving]
  - Decreased appetite [Not Recovered/Not Resolved]
  - Disturbance in attention [Unknown]

NARRATIVE: CASE EVENT DATE: 20230101
